FAERS Safety Report 4760305-1 (Version None)
Quarter: 2005Q3

REPORT INFORMATION
  Report Type: 
  Country: None (occurrence: None)
  Receive Date: 20050831
  Receipt Date: 20050811
  Transmission Date: 20060218
  Serious: No
  Sender: FDA-Public Use
  Company Number: US_0508120748

PATIENT
  Age: 69 Year
  Sex: Male

DRUGS (5)
  1. OLANZAPINE [Suspect]
     Indication: CATATONIA
     Dosage: 10 MG DAY
  2. OLANZAPINE [Suspect]
     Indication: MAJOR DEPRESSION
     Dosage: 10 MG DAY
  3. OLANZAPINE [Suspect]
     Indication: PSYCHOTIC DISORDER
     Dosage: 10 MG DAY
  4. CITALOPRAM [Concomitant]
  5. LORAZEPAM [Concomitant]

REACTIONS (3)
  - CONDITION AGGRAVATED [None]
  - LEUKOPENIA [None]
  - NEUTROPENIA [None]
